FAERS Safety Report 6829638-9 (Version None)
Quarter: 2010Q3

REPORT INFORMATION
  Report Type: 
  Country: None (occurrence: None)
  Receive Date: 20100709
  Receipt Date: 20070425
  Transmission Date: 20110219
  Serious: No
  Sender: FDA-Public Use
  Company Number: US-PFIZER INC-2007015858

PATIENT
  Sex: Female
  Weight: 81.65 kg

DRUGS (12)
  1. CHANTIX [Suspect]
     Indication: SMOKING CESSATION THERAPY
     Dates: start: 20070201
  2. XANAX [Concomitant]
  3. ATENOLOL [Concomitant]
  4. LASIX [Concomitant]
  5. ABILIFY [Concomitant]
  6. SEROQUEL [Concomitant]
  7. TRICOR [Concomitant]
  8. CRESTOR [Concomitant]
  9. VICODIN [Concomitant]
  10. PREVACID [Concomitant]
  11. TEGRETOL [Concomitant]
  12. ALL OTHER THERAPEUTIC PRODUCTS [Concomitant]

REACTIONS (5)
  - ABDOMINAL DISCOMFORT [None]
  - BLOOD CHOLESTEROL INCREASED [None]
  - BLOOD TRIGLYCERIDES INCREASED [None]
  - HAEMOGLOBIN DECREASED [None]
  - NAUSEA [None]
